FAERS Safety Report 8321096-0 (Version None)
Quarter: 2012Q2

REPORT INFORMATION
  Report Type: 
  Country: None (occurrence: None)
  Receive Date: 20120430
  Receipt Date: 20120423
  Transmission Date: 20120825
  Serious: Yes (Other)
  Sender: FDA-Public Use
  Company Number: TW-JNJFOC-20120408071

PATIENT
  Age: 61 Year
  Sex: Female

DRUGS (2)
  1. ROGAINE [Suspect]
     Indication: PRODUCT USED FOR UNKNOWN INDICATION
     Dosage: HIGHER DOSE OF MORE THAN 7 PRESSES
     Route: 061
     Dates: start: 20120409, end: 20120410
  2. ROGAINE [Suspect]
     Route: 061

REACTIONS (4)
  - ULCER [None]
  - HYPERSENSITIVITY [None]
  - INSOMNIA [None]
  - INCORRECT DOSE ADMINISTERED [None]
